FAERS Safety Report 11313160 (Version 1)
Quarter: 2015Q3

REPORT INFORMATION
  Report Type: Spontaneous
  Country: US (occurrence: US)
  Receive Date: 20150727
  Receipt Date: 20150727
  Transmission Date: 20151125
  Serious: No
  Sender: FDA-Public Use
  Company Number: US-ABBVIE-15P-163-1396724-00

PATIENT
  Sex: Female

DRUGS (1)
  1. SYNTHROID [Suspect]
     Active Substance: LEVOTHYROXINE SODIUM
     Indication: PRODUCT USED FOR UNKNOWN INDICATION
     Dosage: FOR A WHILE
     Route: 048

REACTIONS (8)
  - Myalgia [Recovering/Resolving]
  - Myalgia [Recovering/Resolving]
  - Tachyphrenia [Recovered/Resolved]
  - Malaise [Unknown]
  - Product contamination [Unknown]
  - Muscle swelling [Unknown]
  - Tachyphrenia [Recovering/Resolving]
  - Muscle swelling [Recovering/Resolving]

NARRATIVE: CASE EVENT DATE: 20150516
